FAERS Safety Report 7060015-4 (Version None)
Quarter: 2010Q4

REPORT INFORMATION
  Report Type: 
  Country: None (occurrence: None)
  Receive Date: 20101025
  Receipt Date: 20101012
  Transmission Date: 20110411
  Serious: Yes (Other)
  Sender: FDA-Public Use
  Company Number: US-ROCHE-674702

PATIENT
  Sex: Female
  Weight: 56.7 kg

DRUGS (7)
  1. ACCUTANE [Suspect]
     Indication: ACNE
     Route: 048
     Dates: start: 19960523, end: 19961023
  2. ACCUTANE [Suspect]
     Route: 048
     Dates: start: 19970206
  3. ACCUTANE [Suspect]
     Dosage: DOSE INCREASED
     Route: 048
     Dates: start: 19970529, end: 19970802
  4. ACCUTANE [Suspect]
     Route: 048
     Dates: start: 19971211, end: 19980516
  5. ACCUTANE [Suspect]
     Route: 048
     Dates: start: 19990720, end: 20000111
  6. VALTREX [Concomitant]
  7. XANAX [Concomitant]

REACTIONS (20)
  - ALANINE AMINOTRANSFERASE INCREASED [None]
  - ASPARTATE AMINOTRANSFERASE INCREASED [None]
  - BLOOD GLUCOSE DECREASED [None]
  - BLOOD LACTATE DEHYDROGENASE INCREASED [None]
  - BLOOD URIC ACID DECREASED [None]
  - COLITIS ULCERATIVE [None]
  - DEPRESSION [None]
  - DRY EYE [None]
  - ECZEMA [None]
  - EPISTAXIS [None]
  - HEADACHE [None]
  - INFLAMMATORY BOWEL DISEASE [None]
  - LIP DRY [None]
  - MUSCULOSKELETAL PAIN [None]
  - NASAL DRYNESS [None]
  - ONYCHOMYCOSIS [None]
  - SACROILIITIS [None]
  - SUICIDAL IDEATION [None]
  - SUNBURN [None]
  - XEROSIS [None]
